FAERS Safety Report 8310681-8 (Version None)
Quarter: 2012Q2

REPORT INFORMATION
  Report Type: 
  Country: None (occurrence: None)
  Receive Date: 20120425
  Receipt Date: 20120416
  Transmission Date: 20120825
  Serious: Yes (Other)
  Sender: FDA-Public Use
  Company Number: US-JNJFOC-20120407327

PATIENT
  Sex: Female

DRUGS (6)
  1. LITHIUM CARBONATE [Concomitant]
     Indication: SCHIZOAFFECTIVE DISORDER
     Route: 048
     Dates: start: 20120301, end: 20120404
  2. INVEGA SUSTENNA [Suspect]
     Indication: SCHIZOAFFECTIVE DISORDER
     Route: 030
     Dates: start: 20120327
  3. TRAZODONE HCL [Concomitant]
     Route: 048
     Dates: start: 20120301, end: 20120404
  4. RISPERDAL CONSTA [Suspect]
     Indication: SCHIZOAFFECTIVE DISORDER
     Route: 030
     Dates: start: 20120404
  5. INVEGA SUSTENNA [Suspect]
     Route: 030
     Dates: start: 20120322
  6. COGENTIN [Concomitant]
     Route: 048
     Dates: start: 20100101

REACTIONS (4)
  - MEDICATION ERROR [None]
  - BREAST ENGORGEMENT [None]
  - BREAST DISCHARGE [None]
  - BLOOD PROLACTIN INCREASED [None]
